FAERS Safety Report 9915232 (Version 2)
Quarter: 2014Q2

REPORT INFORMATION
  Report Type: Spontaneous
  Country: TR (occurrence: TR)
  Receive Date: 20140221
  Receipt Date: 20140514
  Transmission Date: 20141212
  Serious: Yes (Other)
  Sender: FDA-Public Use
  Company Number: TR-ROCHE-1349501

PATIENT
  Age: 60 Year
  Sex: Male
  Weight: 80 kg

DRUGS (4)
  1. ALTUZAN [Suspect]
     Indication: COLON CANCER
     Route: 042
  2. FOLINIC ACID [Concomitant]
  3. 5-FU [Concomitant]
  4. IRINOTECAN [Concomitant]

REACTIONS (3)
  - Perianal erythema [Recovered/Resolved]
  - Anorectal discomfort [Recovered/Resolved]
  - Skin warm [Recovered/Resolved]
